FAERS Safety Report 13502313 (Version 1)
Quarter: 2017Q2

REPORT INFORMATION
  Report Type: Spontaneous
  Country: AU (occurrence: AU)
  Receive Date: 20170502
  Receipt Date: 20170502
  Transmission Date: 20170830
  Serious: Yes (Other)
  Sender: FDA-Public Use
  Company Number: AU-AMGEN-AUSSP2017044390

PATIENT
  Age: 85 Year
  Sex: Female
  Weight: 79 kg

DRUGS (17)
  1. ALLOPURINOL. [Concomitant]
     Active Substance: ALLOPURINOL
     Dosage: 100 MG, QD
     Route: 048
     Dates: start: 20160217
  2. PARACETAMOL [Concomitant]
     Active Substance: ACETAMINOPHEN
     Dosage: UNK
  3. PANTOPRAZOL [Concomitant]
     Active Substance: PANTOPRAZOLE SODIUM
     Dosage: 20 MG, BID
     Route: 048
     Dates: start: 20161109
  4. MAREVAN [Concomitant]
     Active Substance: WARFARIN SODIUM
     Dosage: 1 MG, QD
     Route: 048
     Dates: start: 20170308
  5. OPTIVE [Concomitant]
     Active Substance: CARBOXYMETHYLCELLULOSE SODIUM\GLYCERIN
     Indication: EYE DISORDER
     Dosage: 1 DROP, UNK
     Route: 047
     Dates: start: 20170125
  6. PROLIA [Suspect]
     Active Substance: DENOSUMAB
     Indication: OSTEOPOROSIS POSTMENOPAUSAL
     Dosage: 60 MG, Q6MO
     Route: 058
     Dates: start: 20160629
  7. FUROSEMIDE. [Concomitant]
     Active Substance: FUROSEMIDE
     Dosage: 40 MG, BID
     Route: 048
     Dates: start: 20170419
  8. VITAMIN D [Concomitant]
     Active Substance: CHOLECALCIFEROL
  9. CRESTOR [Concomitant]
     Active Substance: ROSUVASTATIN CALCIUM
     Indication: HYPERLIPIDAEMIA
     Dosage: 5 MG, QD
     Route: 048
     Dates: start: 20161118
  10. LANTUS [Concomitant]
     Active Substance: INSULIN GLARGINE
     Dosage: 20 UNIT, QD
     Route: 058
     Dates: start: 20161221
  11. TRANDOLAPRIL. [Concomitant]
     Active Substance: TRANDOLAPRIL
     Dosage: 0.5 MG, QD
     Route: 048
     Dates: start: 20170422
  12. XALATAN [Concomitant]
     Active Substance: LATANOPROST
     Dosage: 1 DROP AT NIGHT
     Route: 047
     Dates: start: 20160321
  13. MAGNESIUM OROTATE [Concomitant]
     Dosage: 400 MG, QD
     Route: 048
     Dates: start: 20161217
  14. CALTRATE BONE HEALTH [Concomitant]
     Dosage: 1 DF, BID
     Route: 048
     Dates: start: 20160217
  15. OSTEOMOL 665 PARACETAMOL [Concomitant]
     Dosage: 2 DF, TID
     Route: 048
     Dates: start: 20161123
  16. METOPROLOL TARTRATE. [Concomitant]
     Active Substance: METOPROLOL TARTRATE
     Dosage: QD
     Route: 048
     Dates: start: 20161119
  17. DIAMICRON [Concomitant]
     Active Substance: GLICLAZIDE
     Dosage: 60 MG, QD
     Route: 048
     Dates: start: 20161012

REACTIONS (5)
  - Anaemia [Unknown]
  - Hypocalcaemia [Recovered/Resolved]
  - Gastric ulcer [Unknown]
  - Haematemesis [Unknown]
  - Cataract [Unknown]

NARRATIVE: CASE EVENT DATE: 2016
